FAERS Safety Report 9795058 (Version 1)
Quarter: 2014Q1

REPORT INFORMATION
  Report Type: Report from Study
  Country: IT (occurrence: IT)
  Receive Date: 20140102
  Receipt Date: 20140102
  Transmission Date: 20141002
  Serious: Yes (Hospitalization)
  Sender: FDA-Public Use
  Company Number: IT-ROCHE-1328463

PATIENT
  Sex: Male

DRUGS (7)
  1. ENFUVIRTIDE [Suspect]
     Indication: HIV INFECTION
     Route: 065
  2. TIPRANAVIR [Suspect]
     Indication: HIV INFECTION
     Route: 065
  3. ZIDOVUDINE [Suspect]
     Indication: HIV INFECTION
     Route: 065
  4. TENOFOVIR [Suspect]
     Indication: HIV INFECTION
     Dosage: THERAPY WAS LATER INTERUPTTED
     Route: 065
  5. LAMIVUDINE [Suspect]
     Indication: HIV INFECTION
     Route: 065
  6. AMPHOTERICIN B [Concomitant]
     Indication: FUNGAL INFECTION
     Dosage: STARTED BEFORE THE SALVAGE HAART REGIMEN
     Route: 065
  7. AMPHOTERICIN B [Concomitant]
     Dosage: MAINTANANCE THERAPY WITH HAART THERAPYAND LATER THIS DRUG WAS INTERUPTTED
     Route: 065

REACTIONS (2)
  - Oedema peripheral [Recovered/Resolved]
  - Renal impairment [Recovered/Resolved]
